FAERS Safety Report 8890877 (Version 1)
Quarter: 2012Q4

REPORT INFORMATION
  Report Type: 
  Country: FR (occurrence: FR)
  Receive Date: 20121107
  Receipt Date: 20121107
  Transmission Date: 20130627
  Serious: Yes (Death)
  Sender: FDA-Public Use
  Company Number: FR-ROCHE-1153000

PATIENT
  Age: 62 Year
  Sex: Male

DRUGS (2)
  1. HERCEPTIN [Suspect]
     Indication: BREAST CANCER
     Route: 042
     Dates: start: 20100304, end: 20120907
  2. NAVELBINE [Suspect]
     Indication: BREAST CANCER
     Route: 048
     Dates: start: 20120717, end: 20120913

REACTIONS (1)
  - Febrile bone marrow aplasia [Fatal]
